FAERS Safety Report 20441203 (Version 5)
Quarter: 2022Q1

REPORT INFORMATION
  Report Type: Report from Study
  Country: ES (occurrence: ES)
  Receive Date: 20220208
  Receipt Date: 20220303
  Transmission Date: 20220424
  Serious: Yes (Hospitalization, Other)
  Sender: FDA-Public Use
  Company Number: ES-VALIDUS PHARMACEUTICALS LLC-ES-VDP-2022-015049

PATIENT

DRUGS (7)
  1. FUROSEMIDE [Suspect]
     Active Substance: FUROSEMIDE
     Indication: Fluid retention
     Dosage: UNK
     Route: 048
  2. TOUJEO [Suspect]
     Active Substance: INSULIN GLARGINE
     Indication: Type 2 diabetes mellitus
     Dosage: UNK
     Route: 058
     Dates: start: 202010, end: 2021
  3. TOUJEO [Suspect]
     Active Substance: INSULIN GLARGINE
     Dosage: 18 IU
     Route: 058
     Dates: start: 2021, end: 2021
  4. TOUJEO [Suspect]
     Active Substance: INSULIN GLARGINE
     Dosage: 20 IU
     Route: 058
     Dates: start: 2021
  5. TOUJEO [Suspect]
     Active Substance: INSULIN GLARGINE
     Dosage: 26 IU, QD
     Route: 058
  6. TOUJEO [Suspect]
     Active Substance: INSULIN GLARGINE
     Dosage: 30 IU
     Route: 058
  7. TOUJEO [Suspect]
     Active Substance: INSULIN GLARGINE
     Dosage: 34 IU
     Route: 065

REACTIONS (21)
  - Hip fracture [Recovering/Resolving]
  - Renal failure [Unknown]
  - Skin ulcer [Recovering/Resolving]
  - Blood glucose decreased [Recovered/Resolved]
  - Blood glucose increased [Recovered/Resolved]
  - Blood glucose increased [Recovered/Resolved]
  - Infection [Unknown]
  - Blood glucose fluctuation [Unknown]
  - Blood creatinine abnormal [Unknown]
  - Urinary tract infection [Unknown]
  - Head discomfort [Not Recovered/Not Resolved]
  - Drooling [Unknown]
  - Inflammation [Unknown]
  - Somnolence [Unknown]
  - Peripheral swelling [Unknown]
  - Unevaluable event [Not Recovered/Not Resolved]
  - Blood test abnormal [Unknown]
  - Hernia [Unknown]
  - Nervousness [Unknown]
  - Gait disturbance [Unknown]
  - Hyperglycaemia [Not Recovered/Not Resolved]

NARRATIVE: CASE EVENT DATE: 20201001
